FAERS Safety Report 4494175-6 (Version None)
Quarter: 2004Q4

REPORT INFORMATION
  Report Type: 
  Country: None (occurrence: None)
  Receive Date: 20041105
  Receipt Date: 20040907
  Transmission Date: 20050328
  Serious: Yes (Life-Threatening)
  Sender: FDA-Public Use
  Company Number: US-ROCHE-380070

PATIENT
  Age: 46 Year
  Sex: Female
  Weight: 59 kg

DRUGS (5)
  1. PEGASYS [Suspect]
     Route: 058
     Dates: start: 20031214, end: 20040815
  2. COPEGUS [Suspect]
     Dosage: DOSAGE REGIMEN REPORTED AS 2 AM AND 3 PM.
     Route: 048
     Dates: start: 20030915, end: 20040821
  3. HYDROCHLOROTHIAZIDE [Concomitant]
     Indication: HYPERTENSION
     Route: 048
  4. FELODIPINE [Concomitant]
     Indication: HYPERTENSION
     Route: 048
  5. LABETALOL [Concomitant]
     Indication: HYPERTENSION
     Route: 048

REACTIONS (9)
  - ABDOMINAL DISTENSION [None]
  - ABDOMINAL PAIN UPPER [None]
  - ALANINE AMINOTRANSFERASE INCREASED [None]
  - CYST [None]
  - FATIGUE [None]
  - LYMPHADENOPATHY [None]
  - LYMPHOMA [None]
  - NAUSEA [None]
  - SPLENIC CYST [None]
